FAERS Safety Report 11179706 (Version 2)
Quarter: 2015Q3

REPORT INFORMATION
  Report Type: Spontaneous
  Country: US (occurrence: US)
  Receive Date: 20150611
  Receipt Date: 20150805
  Transmission Date: 20151125
  Serious: No
  Sender: FDA-Public Use
  Company Number: US-BRISTOL-MYERS SQUIBB COMPANY-BMS-2015-036344

PATIENT
  Sex: Male
  Weight: 86.17 kg

DRUGS (1)
  1. ORENCIA [Suspect]
     Active Substance: ABATACEPT
     Indication: RHEUMATOID ARTHRITIS
     Dosage: 125 MG, QWK
     Route: 058
     Dates: start: 20150427, end: 20150702

REACTIONS (3)
  - Mouth ulceration [Recovering/Resolving]
  - Drug ineffective [Unknown]
  - Joint swelling [Not Recovered/Not Resolved]
